FAERS Safety Report 5631296-6 (Version None)
Quarter: 2008Q1

REPORT INFORMATION
  Report Type: 
  Country: None (occurrence: None)
  Receive Date: 20080214
  Receipt Date: 20080205
  Transmission Date: 20080703
  Serious: Yes (Other)
  Sender: FDA-Public Use
  Company Number: 2007BI025487

PATIENT
  Age: 53 Year
  Sex: Male

DRUGS (1)
  1. AVONEX [Suspect]
     Indication: MULTIPLE SCLEROSIS
     Dosage: 30 UG;QW;IM
     Route: 030
     Dates: start: 20040818, end: 20071022

REACTIONS (2)
  - SQUAMOUS CELL CARCINOMA [None]
  - TONGUE CARCINOMA STAGE III [None]
